FAERS Safety Report 9178556 (Version 3)
Quarter: 2013Q2

REPORT INFORMATION
  Report Type: Report from Study
  Country: DE (occurrence: DE)
  Receive Date: 20130321
  Receipt Date: 20130530
  Transmission Date: 20140414
  Serious: Yes (Hospitalization)
  Sender: FDA-Public Use
  Company Number: DE-ABBOTT-13P-062-1063323-00

PATIENT
  Age: 69 Year
  Sex: Female

DRUGS (8)
  1. HUMIRA [Suspect]
     Indication: RHEUMATOID ARTHRITIS
     Route: 058
     Dates: start: 20050101, end: 201302
  2. HUMIRA [Suspect]
     Route: 058
     Dates: start: 2013, end: 20130402
  3. AMIODARON [Concomitant]
     Indication: CARDIAC FAILURE
     Dosage: 1-0-0
  4. BLOPRESS [Concomitant]
     Indication: HYPERTENSION
     Dosage: 1-0-0
  5. TOREM [Concomitant]
     Indication: PRODUCT USED FOR UNKNOWN INDICATION
     Dosage: 1-1-0
  6. BELOC-ZOK [Concomitant]
     Indication: PRODUCT USED FOR UNKNOWN INDICATION
     Dosage: 0.5-0-0.5
  7. URBASON [Concomitant]
     Indication: PRODUCT USED FOR UNKNOWN INDICATION
     Dosage: 1-0-0
  8. PANTOZOL [Concomitant]
     Dosage: 1-0-0

REACTIONS (2)
  - Diverticular perforation [Not Recovered/Not Resolved]
  - Large intestine benign neoplasm [Recovering/Resolving]
